FAERS Safety Report 8462219-2 (Version None)
Quarter: 2012Q2

REPORT INFORMATION
  Report Type: 
  Country: None (occurrence: None)
  Receive Date: 20120625
  Receipt Date: 20120620
  Transmission Date: 20120825
  Serious: Yes (Other)
  Sender: FDA-Public Use
  Company Number: PHHY2012TH041532

PATIENT

DRUGS (4)
  1. TASIGNA [Suspect]
     Dosage: 600 MG PER DAY (3 CAPSULES) ON ODD DAYS AND 800 MG PER DAY (4 CAPSULES) ON EVEN DAYS
     Route: 048
  2. TASIGNA [Suspect]
     Indication: CHRONIC MYELOID LEUKAEMIA
     Dosage: 400 MG, BID
     Route: 048
  3. TASIGNA [Suspect]
     Dosage: 200 MG, DAILY
     Route: 048
  4. TASIGNA [Suspect]
     Dosage: 400 MG, DAILY
     Route: 048

REACTIONS (2)
  - RASH GENERALISED [None]
  - ELECTROCARDIOGRAM QT PROLONGED [None]
